FAERS Safety Report 24800524 (Version 2)
Quarter: 2025Q1

REPORT INFORMATION
  Report Type: Report from Study
  Country: US (occurrence: US)
  Receive Date: 20250102
  Receipt Date: 20250120
  Transmission Date: 20250408
  Serious: Yes (Hospitalization)
  Sender: JOHNSON AND JOHNSON
  Company Number: US-JNJFOC-20241129560

PATIENT
  Age: 67 Year
  Sex: Male
  Weight: 68.57 kg

DRUGS (3)
  1. IMBRUVICA [Suspect]
     Active Substance: IBRUTINIB
     Indication: Lymphocytic lymphoma
     Route: 048
     Dates: start: 20240314, end: 20241106
  2. SODIUM CHLORIDE [Concomitant]
     Active Substance: SODIUM CHLORIDE
     Indication: Hyponatraemia
     Dates: start: 20241031
  3. MULTIVITAMIN [ASCORBIC ACID;BIOTIN;CALCIUM;CHOLINE BITARTRATE;CHROMIUM [Concomitant]
     Dates: start: 2024

REACTIONS (7)
  - Blood sodium decreased [Unknown]
  - Nausea [Unknown]
  - Vomiting [Unknown]
  - Pain in extremity [Not Recovered/Not Resolved]
  - Peripheral swelling [Not Recovered/Not Resolved]
  - Hypoaesthesia [Not Recovered/Not Resolved]
  - Colitis [Unknown]

NARRATIVE: CASE EVENT DATE: 20241026
